FAERS Safety Report 8808390 (Version 1)
Quarter: 2012Q4

REPORT INFORMATION
  Report Type: Spontaneous
  Country: US (occurrence: None)
  Receive Date: 20120920
  Receipt Date: 20120920
  Transmission Date: 20130627
  Serious: No
  Sender: FDA-Public Use
  Company Number: None

PATIENT
  Age: 62 Year
  Sex: Male

DRUGS (2)
  1. GLIPIZIDE [Suspect]
     Dates: start: 20080415, end: 20100524
  2. METFORMIN [Suspect]
     Dates: start: 20080725, end: 20100427

REACTIONS (5)
  - Jaundice [None]
  - Hepatic steatosis [None]
  - Splenomegaly [None]
  - Portal hypertension [None]
  - Hepatic cirrhosis [None]
